APPROVED DRUG PRODUCT: ISOPROTERENOL HYDROCHLORIDE
Active Ingredient: ISOPROTERENOL HYDROCHLORIDE
Strength: 0.062%
Dosage Form/Route: SOLUTION;INHALATION
Application: A087936 | Product #001
Applicant: ARMOUR PHARMACEUTICAL CO
Approved: Nov 18, 1982 | RLD: No | RS: No | Type: DISCN